FAERS Safety Report 24291115 (Version 1)
Quarter: 2024Q3

REPORT INFORMATION
  Report Type: Spontaneous
  Country: DE (occurrence: DE)
  Receive Date: 20240906
  Receipt Date: 20240906
  Transmission Date: 20241016
  Serious: Yes (Other)
  Sender: Harrow Health
  Company Number: DE-IMP-2024000683

PATIENT
  Sex: Male

DRUGS (5)
  1. NEVANAC [Suspect]
     Active Substance: NEPAFENAC
     Indication: Macular oedema
     Dosage: QD (ONCE A DAY IN THE EVENING)
     Route: 047
     Dates: start: 20240815, end: 20240820
  2. NEVANAC [Suspect]
     Active Substance: NEPAFENAC
     Indication: Macular oedema
     Dosage: 3 DROPS EVERY HOUR
     Route: 047
     Dates: start: 20240821
  3. TRAVATAN [Suspect]
     Active Substance: TRAVOPROST
     Indication: Product used for unknown indication
     Route: 065
  4. ELIQUIS [Suspect]
     Active Substance: APIXABAN
     Indication: Product used for unknown indication
     Route: 065
  5. Primovision [Concomitant]

REACTIONS (4)
  - Macular oedema [Unknown]
  - Off label use [Unknown]
  - Off label use [Unknown]
  - Treatment noncompliance [Unknown]

NARRATIVE: CASE EVENT DATE: 20240815
